FAERS Safety Report 8737948 (Version 2)
Quarter: 2013Q2

REPORT INFORMATION
  Report Type: Report from Study
  Country: JP (occurrence: JP)
  Receive Date: 20120823
  Receipt Date: 20130513
  Transmission Date: 20140414
  Serious: No
  Sender: FDA-Public Use
  Company Number: JP-009507513-1207JPN000114

PATIENT
  Age: 45 Year
  Sex: Male
  Weight: 64 kg

DRUGS (15)
  1. PEGINTRON [Suspect]
     Indication: CHRONIC HEPATITIS C
     Dosage: 1.5 MICROGRAM PER KILOGRAM, QW
     Route: 058
     Dates: start: 20120530, end: 20120606
  2. PEGINTRON [Suspect]
     Dosage: 1.5 MICROGRAM, PER WEEK
     Route: 058
     Dates: start: 20120613
  3. REBETOL [Suspect]
     Indication: CHRONIC HEPATITIS C
     Dosage: 800 MG, QD
     Route: 048
     Dates: start: 20120530, end: 20120606
  4. REBETOL [Suspect]
     Dosage: 800 MG, QD
     Route: 048
     Dates: start: 20120613, end: 20120627
  5. REBETOL [Suspect]
     Dosage: 600 MG, QD
     Route: 048
     Dates: start: 20120627, end: 20120704
  6. REBETOL [Suspect]
     Dosage: 400 MG, QD
     Route: 048
     Dates: start: 20120704, end: 20120711
  7. REBETOL [Suspect]
     Dosage: 200 MG, QD
     Route: 048
     Dates: start: 20120711, end: 20120829
  8. REBETOL [Suspect]
     Dosage: 400 MG, QD
     Route: 048
     Dates: start: 20120830, end: 20120926
  9. REBETOL [Suspect]
     Dosage: 600 MG, QD
     Route: 048
     Dates: start: 20120927
  10. TELAVIC [Suspect]
     Indication: CHRONIC HEPATITIS C
     Dosage: 2250 MG, QD
     Route: 048
     Dates: start: 20120530, end: 20120606
  11. TELAVIC [Suspect]
     Dosage: 1500 MG, QD
     Route: 048
     Dates: start: 20120613, end: 20120829
  12. URSO [Concomitant]
     Indication: CHRONIC HEPATITIS C
     Dosage: 600 MG, QD
     Route: 048
     Dates: start: 20120411
  13. LOXONIN [Concomitant]
     Dosage: 60 MG/DAY, AS NEEDED
     Route: 048
     Dates: start: 20120531
  14. ALOSITOL [Concomitant]
     Dosage: 200 MG, QD
     Route: 048
  15. MUCOSTA [Concomitant]
     Indication: PROPHYLAXIS
     Dosage: 100 MG/DAY, AS NEEDED
     Route: 048
     Dates: start: 20120531

REACTIONS (1)
  - Platelet count decreased [Recovered/Resolved]
